FAERS Safety Report 20707016 (Version 1)
Quarter: 2022Q2

REPORT INFORMATION
  Report Type: Spontaneous
  Country: US (occurrence: US)
  Receive Date: 20220413
  Receipt Date: 20220413
  Transmission Date: 20220721
  Serious: No
  Sender: FDA-Public Use
  Company Number: US-PFIZER INC-202100986969

PATIENT
  Age: 57 Year
  Sex: Female

DRUGS (1)
  1. CHANTIX [Suspect]
     Active Substance: VARENICLINE TARTRATE
     Indication: Smoking cessation therapy
     Dosage: UNK
     Dates: start: 20210607, end: 20210621

REACTIONS (8)
  - Illness [Unknown]
  - Blood glucose abnormal [Unknown]
  - Recalled product administered [Unknown]
  - Fall [Unknown]
  - Palpitations [Unknown]
  - Nausea [Unknown]
  - Vomiting [Unknown]
  - Pain in extremity [Unknown]

NARRATIVE: CASE EVENT DATE: 20210601
